FAERS Safety Report 23198269 (Version 4)
Quarter: 2024Q1

REPORT INFORMATION
  Report Type: Spontaneous
  Country: US (occurrence: US)
  Receive Date: 20231117
  Receipt Date: 20240314
  Transmission Date: 20240410
  Serious: Yes (Hospitalization, Other)
  Sender: FDA-Public Use
  Company Number: US-PFIZER INC-202101727196

PATIENT
  Age: 84 Year
  Sex: Female
  Weight: 88.435 kg

DRUGS (9)
  1. IBRANCE [Suspect]
     Active Substance: PALBOCICLIB
     Indication: Breast cancer female
     Dosage: 1 TAB QD FOR 2 DAYS, THEN ONE DAY OFF, THEN REPEAT.
     Route: 048
     Dates: start: 201601
  2. IBRANCE [Suspect]
     Active Substance: PALBOCICLIB
     Dosage: 1 TABLET ONCE A DAY FOR 21 DAYS AND OFF FOR 7 DAYS
     Route: 048
  3. IBRANCE [Suspect]
     Active Substance: PALBOCICLIB
     Dosage: 37.5 MG, DAILY
     Route: 048
     Dates: start: 202110
  4. IBRANCE [Suspect]
     Active Substance: PALBOCICLIB
     Dosage: 75 MG, ALTERNATE DAY
     Route: 048
  5. IBRANCE [Suspect]
     Active Substance: PALBOCICLIB
     Dosage: 1 TAB EVERY THIRD DAY
     Route: 048
  6. IBRANCE [Suspect]
     Active Substance: PALBOCICLIB
     Dosage: 1 TAB, EVERY OTHER DAY (QOD) FOR 21 DAYS + THEN 7 DAYS OFF; REPEAT
     Route: 048
  7. IBRANCE [Suspect]
     Active Substance: PALBOCICLIB
     Dosage: 1 TAB, EVERY THIRD DAY
     Route: 048
  8. IBRANCE [Suspect]
     Active Substance: PALBOCICLIB
     Dosage: 1 TAB QD (ONCE A DAY) FOR 2 DAYS, THEN ONE DAY OFF, THEN REPEAT
     Route: 048
  9. LETROZOLE [Concomitant]
     Active Substance: LETROZOLE
     Dosage: UNK
     Dates: start: 201601

REACTIONS (6)
  - Deep vein thrombosis [Unknown]
  - Pancytopenia [Unknown]
  - Hepatic steatosis [Unknown]
  - Neoplasm recurrence [Unknown]
  - Off label use [Unknown]
  - Off label use [Unknown]

NARRATIVE: CASE EVENT DATE: 20160101
